FAERS Safety Report 9587136 (Version 2)
Quarter: 2013Q4

REPORT INFORMATION
  Report Type: Spontaneous
  Country: US (occurrence: US)
  Receive Date: 20131003
  Receipt Date: 20131021
  Transmission Date: 20140711
  Serious: Yes (Hospitalization)
  Sender: FDA-Public Use
  Company Number: US-ACTELION-A-NJ2013-88966

PATIENT
  Age: 51 Year
  Sex: Female

DRUGS (2)
  1. TRACLEER [Suspect]
     Indication: PULMONARY ARTERIAL HYPERTENSION
     Dosage: UNK
     Route: 048
  2. ADCIRCA [Concomitant]

REACTIONS (7)
  - Gastric polyps [Recovering/Resolving]
  - Haematemesis [Recovering/Resolving]
  - Rectal haemorrhage [Recovering/Resolving]
  - Transfusion [Recovering/Resolving]
  - Anaemia [Recovering/Resolving]
  - Gastric polypectomy [Recovering/Resolving]
  - Electrocauterisation [Recovering/Resolving]
